FAERS Safety Report 10092908 (Version 1)
Quarter: 2014Q2

REPORT INFORMATION
  Report Type: Spontaneous
  Country: US (occurrence: US)
  Receive Date: 20140421
  Receipt Date: 20140421
  Transmission Date: 20141212
  Serious: No
  Sender: FDA-Public Use
  Company Number: US-SA-2013SA095712

PATIENT
  Sex: Female

DRUGS (2)
  1. ALLEGRA [Suspect]
     Route: 065
  2. CLARITIN [Suspect]
     Route: 065

REACTIONS (3)
  - Headache [Not Recovered/Not Resolved]
  - Insomnia [Not Recovered/Not Resolved]
  - Extra dose administered [Unknown]
